FAERS Safety Report 6842323-2 (Version None)
Quarter: 2010Q3

REPORT INFORMATION
  Report Type: 
  Country: None (occurrence: None)
  Receive Date: 20100714
  Receipt Date: 20070724
  Transmission Date: 20110219
  Serious: No
  Sender: FDA-Public Use
  Company Number: US-PFIZER INC-2007063131

PATIENT
  Sex: Female
  Weight: 72.6 kg

DRUGS (3)
  1. CHANTIX [Suspect]
     Indication: SMOKING CESSATION THERAPY
     Dates: start: 20070601
  2. LEXAPRO [Concomitant]
     Indication: ANXIETY
  3. LEXAPRO [Concomitant]
     Indication: PREMENSTRUAL SYNDROME

REACTIONS (3)
  - ABNORMAL DREAMS [None]
  - MEDICATION ERROR [None]
  - NAUSEA [None]
